FAERS Safety Report 9820487 (Version 2)
Quarter: 2014Q4

REPORT INFORMATION
  Report Type: Spontaneous
  Country: US (occurrence: None)
  Receive Date: 20131028
  Receipt Date: 20141015
  Transmission Date: 20150529
  Serious: Yes (Other)
  Sender: FDA-Public Use
  Company Number: 2013US001722

PATIENT
  Age: 59 Year
  Sex: Female
  Weight: 66 kg

DRUGS (8)
  1. HYDROCODONE (HYDROCODONE) [Concomitant]
     Active Substance: HYDROCODONE
  2. METFORMIN [Concomitant]
     Active Substance: METFORMIN HYDROCHLORIDE
  3. GABAPENTIN (GABAPENTIN) [Concomitant]
     Active Substance: GABAPENTIN
  4. SIMVASTATIN (SIMVASTATIN) [Concomitant]
     Active Substance: SIMVASTATIN
  5. OMEPRAZOLE (OMEPRAZOLE) [Concomitant]
     Active Substance: OMEPRAZOLE
  6. LETROZOLE (LETROZOLE) [Concomitant]
     Active Substance: LETROZOLE
  7. LISINOPRIL (LISINOPRIL) [Concomitant]
     Active Substance: LISINOPRIL
  8. ICLUSIG [Suspect]
     Active Substance: PONATINIB
     Indication: CHRONIC MYELOID LEUKAEMIA
     Route: 048
     Dates: start: 20130410

REACTIONS (4)
  - Dry skin [None]
  - Rash erythematous [None]
  - Pruritus [None]
  - Rash maculo-papular [None]

NARRATIVE: CASE EVENT DATE: 20130520
